FAERS Safety Report 9091100 (Version 3)
Quarter: 2014Q2

REPORT INFORMATION
  Report Type: Report from Study
  Country: AR (occurrence: AR)
  Receive Date: 20130218
  Receipt Date: 20140414
  Transmission Date: 20141212
  Serious: Yes (Other)
  Sender: FDA-Public Use
  Company Number: PHHY2012AR127496

PATIENT
  Age: 64 Year
  Sex: Male

DRUGS (8)
  1. ONBREZ [Suspect]
     Indication: CHRONIC OBSTRUCTIVE PULMONARY DISEASE
     Dosage: 150 UG, QD
     Route: 055
     Dates: start: 201209
  2. SEEBRI BREEZHALER [Suspect]
     Indication: CHRONIC OBSTRUCTIVE PULMONARY DISEASE
     Dosage: 3  CAPSULES
  3. SPIRIVA [Suspect]
     Indication: CHRONIC OBSTRUCTIVE PULMONARY DISEASE
     Dosage: 3 CAPSULES
  4. TELMISARTAN [Concomitant]
     Indication: HYPERTENSION
     Dosage: UNK
  5. ROSUVASTATIN [Concomitant]
     Indication: HYPERTENSION
     Dosage: UNK
  6. CLOPIDOGREL [Concomitant]
     Indication: HYPERTENSION
     Dosage: UNK
  7. OMEPRAZOLE [Concomitant]
     Indication: HYPERTENSION
     Dosage: UNK
  8. CLONAZEPAM [Concomitant]
     Indication: HYPERTENSION
     Dosage: UNK

REACTIONS (3)
  - Arterial occlusive disease [Not Recovered/Not Resolved]
  - Infarction [Recovering/Resolving]
  - Myocardial infarction [Unknown]
